FAERS Safety Report 20962191 (Version 3)
Quarter: 2024Q2

REPORT INFORMATION
  Report Type: Spontaneous
  Country: US (occurrence: None)
  Receive Date: 20220615
  Receipt Date: 20240613
  Transmission Date: 20240716
  Serious: No
  Sender: FDA-Public Use
  Company Number: US-MDD US Operations-MDD202107-001556

PATIENT
  Age: 65 Year
  Sex: Female
  Weight: 67.58 kg

DRUGS (16)
  1. APOKYN [Suspect]
     Active Substance: APOMORPHINE HYDROCHLORIDE
     Indication: Parkinson^s disease
     Route: 058
  2. APOKYN [Suspect]
     Active Substance: APOMORPHINE HYDROCHLORIDE
     Route: 058
     Dates: start: 20151104
  3. APOKYN [Suspect]
     Active Substance: APOMORPHINE HYDROCHLORIDE
     Route: 058
  4. XARELTO [Concomitant]
     Active Substance: RIVAROXABAN
  5. PREDNISONE [Concomitant]
     Active Substance: PREDNISONE
     Dosage: NOT PROVIDED
  6. Calcium/vitamin D/vitamin k [Concomitant]
     Dosage: NOT PROVIDED
  7. LYRICA [Concomitant]
     Active Substance: PREGABALIN
     Dosage: NOT PROVIDED
  8. CELEXA [Concomitant]
     Active Substance: CITALOPRAM HYDROBROMIDE
     Dosage: NOT PROVIDED
  9. COMTAN [Concomitant]
     Active Substance: ENTACAPONE
     Dosage: NOT PROVIDED
  10. AMANTADINE [Concomitant]
     Active Substance: AMANTADINE
     Dosage: NOT PROVIDED
  11. CARBIDOPA\LEVODOPA [Concomitant]
     Active Substance: CARBIDOPA\LEVODOPA
     Dosage: NOT PROVIDED
  12. CLONAZEPAM [Concomitant]
     Active Substance: CLONAZEPAM
     Dosage: NOT PROVIDED
  13. MIRAPEX [Concomitant]
     Active Substance: PRAMIPEXOLE DIHYDROCHLORIDE
     Dosage: NOT PROVIDED
  14. CALCIUM\VITAMIN D [Concomitant]
     Active Substance: CALCIUM\VITAMIN D
     Dosage: NOT PROVIDED
  15. Calcium/Vitamin K [Concomitant]
     Dosage: NOT PROVIDED
  16. PREDNISONE [Concomitant]
     Active Substance: PREDNISONE
     Dosage: NOT PROVIDED

REACTIONS (10)
  - Seizure [Unknown]
  - Pain [Unknown]
  - Drug interaction [Unknown]
  - Feeling abnormal [Unknown]
  - Dyspnoea [Unknown]
  - Injection site nodule [Unknown]
  - Muscle fatigue [Unknown]
  - Sedation [Unknown]
  - Device difficult to use [Unknown]
  - Therapeutic response shortened [Unknown]
